FAERS Safety Report 7473585-9 (Version None)
Quarter: 2011Q2

REPORT INFORMATION
  Report Type: 
  Country: None (occurrence: None)
  Receive Date: 20110511
  Receipt Date: 20110502
  Transmission Date: 20111010
  Serious: Yes (Other)
  Sender: FDA-Public Use
  Company Number: US-ASTRAZENECA-2011SE14745

PATIENT
  Sex: Female

DRUGS (1)
  1. CRESTOR [Suspect]
     Route: 048

REACTIONS (5)
  - INTERVERTEBRAL DISC COMPRESSION [None]
  - FALL [None]
  - MYOCARDIAL INFARCTION [None]
  - SPINAL FRACTURE [None]
  - BACK INJURY [None]
